FAERS Safety Report 5900599-X (Version None)
Quarter: 2008Q3

REPORT INFORMATION
  Report Type: 
  Country: None (occurrence: None)
  Receive Date: 20080926
  Receipt Date: 20080916
  Transmission Date: 20090109
  Serious: Yes (Other)
  Sender: FDA-Public Use
  Company Number: JP-PFIZER INC-2008075877

PATIENT
  Age: 89 Year
  Sex: Male

DRUGS (2)
  1. ZYVOX [Suspect]
     Indication: PNEUMONIA STAPHYLOCOCCAL
     Dosage: DAILY DOSE:1200MG
     Route: 042
     Dates: start: 20080828
  2. MEROPEN [Suspect]
     Indication: PNEUMONIA STAPHYLOCOCCAL
     Dosage: TEXT:1G
     Route: 042
     Dates: start: 20080828

REACTIONS (1)
  - RASH [None]
